FAERS Safety Report 8159471-X (Version None)
Quarter: 2012Q1

REPORT INFORMATION
  Report Type: 
  Country: None (occurrence: None)
  Receive Date: 20120223
  Receipt Date: 20120213
  Transmission Date: 20120608
  Serious: Yes (Hospitalization, Other)
  Sender: FDA-Public Use
  Company Number: JP-TEVA-2011004724

PATIENT
  Age: 86 Year
  Sex: Male

DRUGS (13)
  1. LEVOFLOXACIN [Concomitant]
     Dates: start: 20110526
  2. MEROPENEM [Concomitant]
     Dates: start: 20110811, end: 20110819
  3. RASBURICASE [Concomitant]
     Dates: start: 20110526, end: 20110527
  4. ALLOPURINOL [Concomitant]
     Dates: start: 20110526
  5. NICERGOLINE [Concomitant]
     Dates: start: 20110526
  6. ASPIRIN [Concomitant]
     Dates: start: 20110526
  7. VALSARTAN [Concomitant]
     Dates: start: 20110526
  8. BENDAMUSTINE HCL [Suspect]
     Route: 042
  9. BENDAMUSTINE HCL [Suspect]
     Route: 042
     Dates: start: 20110721, end: 20110722
  10. FAMOTIDINE [Concomitant]
     Dates: start: 20110526
  11. BENDAMUSTINE HCL [Suspect]
     Indication: MANTLE CELL LYMPHOMA RECURRENT
     Route: 042
     Dates: start: 20110526, end: 20110527
  12. SULFAMETHIZOLE TAB [Concomitant]
     Dates: start: 20110526
  13. FLUCONAZOLE [Concomitant]
     Dates: start: 20110526

REACTIONS (6)
  - DECREASED APPETITE [None]
  - CYTOMEGALOVIRUS INFECTION [None]
  - PYREXIA [None]
  - NEUTROPENIA [None]
  - MALAISE [None]
  - ANAEMIA [None]
